FAERS Safety Report 4608011-8 (Version None)
Quarter: 2005Q2

REPORT INFORMATION
  Report Type: 
  Country: None (occurrence: None)
  Receive Date: 20050303
  Receipt Date: 20041022
  Transmission Date: 20051028
  Serious: No
  Sender: FDA-Public Use
  Company Number: 209876

PATIENT
  Age: 9 Year
  Sex: Male
  Weight: 35.8 kg

DRUGS (6)
  1. XOLAIR [Suspect]
     Indication: ASTHMA
     Dosage: 300 MG, Q2W, SUBCUTANEOUS
     Route: 058
     Dates: start: 20041018
  2. RHINOCORT [Concomitant]
  3. CLARITIN [Concomitant]
  4. ALLERGY SHOTS (ALLERGENIC EXTRACTS) [Concomitant]
  5. SINGULAR (MONTELUKAST SODIUM) [Concomitant]
  6. ADVAIR (FLUTICASONE PROPIONATE, SALMETEROL XINAFOATE) [Concomitant]

REACTIONS (2)
  - APHONIA [None]
  - THROAT TIGHTNESS [None]
